FAERS Safety Report 8839026 (Version 4)
Quarter: 2013Q3

REPORT INFORMATION
  Report Type: Report from Study
  Country: US (occurrence: US)
  Receive Date: 20121015
  Receipt Date: 20130806
  Transmission Date: 20140515
  Serious: Yes (Other)
  Sender: FDA-Public Use
  Company Number: US-BIOGENIDEC-2012BI042631

PATIENT
  Age: 40 Year
  Sex: Male

DRUGS (15)
  1. TYSABRI [Suspect]
     Indication: MULTIPLE SCLEROSIS
     Route: 042
     Dates: start: 20050121
  2. TYSABRI [Suspect]
     Indication: MULTIPLE SCLEROSIS
     Route: 042
     Dates: start: 20071029, end: 20110202
  3. TYSABRI [Suspect]
     Indication: MULTIPLE SCLEROSIS
     Route: 042
     Dates: start: 20120221, end: 20120515
  4. TYSABRI [Suspect]
     Indication: MULTIPLE SCLEROSIS
     Route: 042
     Dates: start: 20121025, end: 20121204
  5. PROMETHAZINE [Concomitant]
     Indication: NAUSEA
     Dates: start: 201012
  6. BACLOFEN [Concomitant]
     Indication: MUSCLE SPASMS
     Dates: start: 201012
  7. CLONAZEPAM [Concomitant]
     Indication: MUSCLE SPASMS
     Dates: start: 201108
  8. CLONAZEPAM [Concomitant]
     Indication: ANXIETY
     Dates: start: 201108
  9. LITHIUM CARBONATE [Concomitant]
     Indication: BIPOLAR DISORDER
     Dates: start: 201101
  10. LITHIUM CARBONATE [Concomitant]
     Indication: AFFECTIVE DISORDER
     Dates: start: 201101
  11. ADDERALL [Concomitant]
     Indication: ATTENTION DEFICIT/HYPERACTIVITY DISORDER
     Dates: start: 201112
  12. FLEXERIL [Concomitant]
     Indication: MUSCLE SPASMS
     Dates: start: 201202, end: 201207
  13. CYMBALTA [Concomitant]
     Indication: AFFECTIVE DISORDER
     Dates: start: 201202, end: 201210
  14. OPANA ER [Concomitant]
     Indication: PAIN MANAGEMENT
     Dates: start: 201202, end: 201208
  15. SILYMARIN [Concomitant]
     Indication: LIVER FUNCTION TEST ABNORMAL
     Dates: start: 201202

REACTIONS (1)
  - Hepatitis C [Not Recovered/Not Resolved]
